FAERS Safety Report 7781864-0 (Version None)
Quarter: 2011Q3

REPORT INFORMATION
  Report Type: 
  Country: None (occurrence: None)
  Receive Date: 20110927
  Receipt Date: 20110920
  Transmission Date: 20111222
  Serious: Yes (Other)
  Sender: FDA-Public Use
  Company Number: US-VERTEX PHARMACEUTICALS INC.-AE-2011-001687

PATIENT
  Sex: Female
  Weight: 86.714 kg

DRUGS (13)
  1. SINGULAIR [Concomitant]
     Indication: HYPERSENSITIVITY
  2. MOBIC [Concomitant]
     Indication: ARTHRITIS
     Route: 048
  3. PERCOCET [Concomitant]
     Indication: FIBROMYALGIA
  4. DETROL LA [Concomitant]
     Indication: BLADDER DISORDER
  5. CLONIDINE [Concomitant]
     Indication: HYPERTENSION
     Route: 048
  6. PEG-INTRON [Concomitant]
     Indication: HEPATITIS C
     Route: 058
     Dates: start: 20110702, end: 20110816
  7. RIBAVIRIN [Concomitant]
     Indication: HEPATITIS C
     Route: 048
     Dates: start: 20110703
  8. PRILOSEC [Concomitant]
     Indication: GASTROOESOPHAGEAL REFLUX DISEASE
     Route: 048
  9. INCIVEK [Suspect]
     Indication: HEPATITIS C
     Route: 048
     Dates: start: 20110703
  10. ADVAIR DISKUS 100/50 [Concomitant]
     Indication: ASTHMA
     Route: 048
  11. ALBUTEROL INHALER [Concomitant]
     Indication: ASTHMA
  12. PERCOCET [Concomitant]
     Indication: ARTHRITIS
     Route: 048
  13. SINGULAIR [Concomitant]
     Indication: ASTHMA
     Route: 048

REACTIONS (5)
  - SWOLLEN TONGUE [None]
  - EYE HAEMORRHAGE [None]
  - DYSPHAGIA [None]
  - RASH GENERALISED [None]
  - HAEMOGLOBIN DECREASED [None]
